FAERS Safety Report 21958062 (Version 2)
Quarter: 2023Q1

REPORT INFORMATION
  Report Type: Spontaneous
  Country: AR (occurrence: AR)
  Receive Date: 20230206
  Receipt Date: 20230215
  Transmission Date: 20230418
  Serious: Yes (Hospitalization)
  Sender: FDA-Public Use
  Company Number: AR-OEPI8P-947

PATIENT

DRUGS (6)
  1. NERLYNX [Suspect]
     Active Substance: NERATINIB
     Indication: HER2 positive breast cancer
     Dosage: 160 MG, DAILY
     Route: 048
     Dates: start: 20221119
  2. NERLYNX [Suspect]
     Active Substance: NERATINIB
     Dosage: 200 MG, DAILY
     Route: 048
  3. NERLYNX [Suspect]
     Active Substance: NERATINIB
     Dosage: 240 MG, DAILY
     Route: 048
  4. NERLYNX [Suspect]
     Active Substance: NERATINIB
     Dosage: 120 MG, DAILY
     Route: 048
     Dates: start: 20230131, end: 20230203
  5. CAPECITABINE [Concomitant]
     Active Substance: CAPECITABINE
     Indication: Product used for unknown indication
     Dosage: UNK
  6. LOPERAMIDE [Concomitant]
     Active Substance: LOPERAMIDE
     Indication: Product used for unknown indication
     Dosage: THERAPY INTERVAL: 1 PILL EVERY 8H

REACTIONS (5)
  - Off label use [Unknown]
  - Dehydration [Unknown]
  - Vomiting [Unknown]
  - Drug intolerance [Unknown]
  - Vomiting [Unknown]

NARRATIVE: CASE EVENT DATE: 20221119
